FAERS Safety Report 11217077 (Version 2)
Quarter: 2015Q4

REPORT INFORMATION
  Report Type: Spontaneous
  Country: IN (occurrence: IN)
  Receive Date: 20150624
  Receipt Date: 20151007
  Transmission Date: 20160304
  Serious: Yes (Hospitalization)
  Sender: FDA-Public Use
  Company Number: IN-MERCK-1506IND011391

PATIENT
  Age: 53 Year
  Sex: Male
  Weight: 80 kg

DRUGS (3)
  1. JANUMET [Suspect]
     Active Substance: METFORMIN HYDROCHLORIDE\SITAGLIPTIN PHOSPHATE
     Dosage: 1 DF, BID
     Route: 048
     Dates: start: 2015
  2. JANUMET [Suspect]
     Active Substance: METFORMIN HYDROCHLORIDE\SITAGLIPTIN PHOSPHATE
     Indication: DIABETES MELLITUS
     Dosage: 1 TABLET/DAY
     Route: 048
     Dates: end: 2015
  3. JANUVIA [Suspect]
     Active Substance: SITAGLIPTIN PHOSPHATE
     Indication: DIABETES MELLITUS
     Dosage: 1 TABLET/DAY
     Route: 048

REACTIONS (6)
  - Wound [Recovered/Resolved]
  - Impaired healing [Recovered/Resolved]
  - Inappropriate schedule of drug administration [Unknown]
  - Blood glucose abnormal [Unknown]
  - Overdose [Unknown]
  - Cardiac disorder [Recovering/Resolving]

NARRATIVE: CASE EVENT DATE: 2015
